FAERS Safety Report 6823839-1 (Version None)
Quarter: 2010Q3

REPORT INFORMATION
  Report Type: 
  Country: None (occurrence: None)
  Receive Date: 20100708
  Receipt Date: 20060911
  Transmission Date: 20110219
  Serious: Yes (Other)
  Sender: FDA-Public Use
  Company Number: US-PFIZER INC-2006111286

PATIENT
  Sex: Male
  Weight: 104.33 kg

DRUGS (3)
  1. CHANTIX [Suspect]
  2. ELAVIL [Suspect]
     Indication: ALCOHOL USE
     Dates: start: 20060801
  3. ALEVE (CAPLET) [Concomitant]

REACTIONS (2)
  - DYSPHAGIA [None]
  - SLEEP DISORDER [None]
